FAERS Safety Report 11122580 (Version 1)
Quarter: 2015Q2

REPORT INFORMATION
  Report Type: Spontaneous
  Country: US (occurrence: None)
  Receive Date: 20150518
  Receipt Date: 20150518
  Transmission Date: 20150821
  Serious: Yes (Disabling)
  Sender: FDA-Public Use
  Company Number: None

PATIENT
  Age: 60 Year
  Sex: Male
  Weight: 83.92 kg

DRUGS (2)
  1. LITHOBID 300 GENERIC [Suspect]
     Active Substance: LITHIUM CARBONATE
     Indication: BIPOLAR DISORDER
     Dosage: 2 PILLS TWICE DAILY TAKEN BY MOUTH
     Route: 048
     Dates: start: 19850505, end: 20050505
  2. TYLENOL WITH CODEINE [Concomitant]
     Active Substance: ACETAMINOPHEN\CODEINE PHOSPHATE

REACTIONS (8)
  - Neuropathy peripheral [None]
  - Headache [None]
  - Visual impairment [None]
  - Toxicity to various agents [None]
  - Myalgia [None]
  - Hearing impaired [None]
  - Ageusia [None]
  - Fibromyalgia [None]

NARRATIVE: CASE EVENT DATE: 20150505
